FAERS Safety Report 7972543-5 (Version None)
Quarter: 2011Q4

REPORT INFORMATION
  Report Type: 
  Country: None (occurrence: None)
  Receive Date: 20111209
  Receipt Date: 20111201
  Transmission Date: 20120403
  Serious: Yes (Other)
  Sender: FDA-Public Use
  Company Number: AUR-APL-2011-06065

PATIENT
  Sex: Male

DRUGS (2)
  1. HYDROCHLOROTHIAZIDE [Suspect]
     Indication: HYPERTENSION
  2. LOSARTAN POTASSIUM [Suspect]
     Indication: HYPERTENSION

REACTIONS (2)
  - PREMATURE EJACULATION [None]
  - ERECTILE DYSFUNCTION [None]
